FAERS Safety Report 23852763 (Version 2)
Quarter: 2024Q2

REPORT INFORMATION
  Report Type: Spontaneous
  Country: DE (occurrence: DE)
  Receive Date: 20240514
  Receipt Date: 20240626
  Transmission Date: 20240716
  Serious: Yes (Hospitalization, Other)
  Sender: FDA-Public Use
  Company Number: DE-002147023-NVSC2024DE099689

PATIENT
  Sex: Female

DRUGS (2)
  1. CYCLOSPORINE [Suspect]
     Active Substance: CYCLOSPORINE
     Indication: Renal disorder
     Dosage: 100 MG, BID (STRENGTH: 100 MG)
     Route: 065
     Dates: start: 202311, end: 202402
  2. CYCLOSPORINE [Suspect]
     Active Substance: CYCLOSPORINE
     Indication: Renal disorder
     Dosage: 25 MG, BID
     Route: 065
     Dates: start: 202311, end: 202402

REACTIONS (3)
  - Amyloidosis [Unknown]
  - General physical condition [Recovered/Resolved]
  - Personality change [Recovered/Resolved]

NARRATIVE: CASE EVENT DATE: 20240101
